FAERS Safety Report 8069923-9 (Version None)
Quarter: 2012Q1

REPORT INFORMATION
  Report Type: 
  Country: None (occurrence: None)
  Receive Date: 20120125
  Receipt Date: 20120113
  Transmission Date: 20120608
  Serious: Yes (Other)
  Sender: FDA-Public Use
  Company Number: FR-AMGEN-FRASP2012003832

PATIENT
  Age: 50 Year
  Sex: Female

DRUGS (5)
  1. ENBREL [Suspect]
     Indication: PRODUCT USED FOR UNKNOWN INDICATION
     Dosage: 50 MG, WEEKLY
     Route: 058
     Dates: start: 20110626
  2. POTASSIUM CHLORIDE [Concomitant]
     Dosage: UNK
  3. RIFAMPIN AND ISONIAZID [Concomitant]
     Indication: SPONDYLITIS
     Dosage: UNK
     Dates: start: 20110601, end: 20110801
  4. INDAPAMIDE [Concomitant]
     Dosage: UNK
  5. LEXOMIL [Concomitant]
     Dosage: UNK

REACTIONS (1)
  - BASEDOW'S DISEASE [None]
